FAERS Safety Report 16346840 (Version 1)
Quarter: 2019Q2

REPORT INFORMATION
  Report Type: Report from Study
  Country: US (occurrence: US)
  Receive Date: 20190523
  Receipt Date: 20190523
  Transmission Date: 20190711
  Serious: Yes (Other)
  Sender: FDA-Public Use
  Company Number: US-BAYER-2019-100720

PATIENT
  Sex: Female

DRUGS (2)
  1. HEPARIN [Interacting]
     Active Substance: HEPARIN SODIUM
     Dosage: 5000 ML, Q8HR
     Route: 058
  2. ASPIRIN 325MG [Suspect]
     Active Substance: ASPIRIN
     Dosage: UNK UNK, QD

REACTIONS (3)
  - Intraventricular haemorrhage [Recovered/Resolved]
  - Labelled drug-drug interaction medication error [None]
  - Product administration error [None]
